FAERS Safety Report 21312814 (Version 1)
Quarter: 2022Q3

REPORT INFORMATION
  Report Type: Spontaneous
  Country: US (occurrence: US)
  Receive Date: 20220909
  Receipt Date: 20220909
  Transmission Date: 20221026
  Serious: Yes (Other)
  Sender: FDA-Public Use
  Company Number: US-SA-SAC20220907000142

PATIENT

DRUGS (3)
  1. ZANTAC [Suspect]
     Active Substance: RANITIDINE HYDROCHLORIDE
     Dosage: UNK PRESCRIPTION
     Route: 065
     Dates: start: 1995, end: 2017
  2. ZANTAC [Suspect]
     Active Substance: RANITIDINE HYDROCHLORIDE
     Dosage: UNK OVER THE COUNTER
     Route: 048
     Dates: start: 1995, end: 2017
  3. RANITIDINE HYDROCHLORIDE [Suspect]
     Active Substance: RANITIDINE HYDROCHLORIDE
     Dosage: UNK PRESCRIPTION
     Route: 048
     Dates: start: 1995, end: 2017

REACTIONS (2)
  - Breast cancer [Unknown]
  - Colorectal cancer [Unknown]
